FAERS Safety Report 23981709 (Version 1)
Quarter: 2024Q2

REPORT INFORMATION
  Report Type: Spontaneous
  Country: CN (occurrence: CN)
  Receive Date: 20240617
  Receipt Date: 20240617
  Transmission Date: 20240716
  Serious: Yes (Hospitalization, Other)
  Sender: FDA-Public Use
  Company Number: CN-002147023-NVSC2024CN125163

PATIENT
  Age: 60 Year
  Sex: Male
  Weight: 50 kg

DRUGS (1)
  1. PAZOPANIB [Suspect]
     Active Substance: PAZOPANIB
     Indication: Chemotherapy
     Dosage: 800 MG, QD
     Route: 048
     Dates: start: 20240524, end: 20240603

REACTIONS (4)
  - Autoimmune hepatitis [Recovering/Resolving]
  - Pruritus [Unknown]
  - Jaundice [Unknown]
  - Chromaturia [Unknown]

NARRATIVE: CASE EVENT DATE: 20240604
